FAERS Safety Report 6656680-3 (Version None)
Quarter: 2010Q1

REPORT INFORMATION
  Report Type: 
  Country: None (occurrence: None)
  Receive Date: 20100329
  Receipt Date: 20100315
  Transmission Date: 20100710
  Serious: Yes (Hospitalization)
  Sender: FDA-Public Use
  Company Number: NL-MEDIMMUNE-MEDI-0010705

PATIENT
  Sex: Male
  Weight: 3.01 kg

DRUGS (1)
  1. SYNAGIS [Suspect]
     Dates: start: 20100212, end: 20100212

REACTIONS (2)
  - FEEDING DISORDER OF INFANCY OR EARLY CHILDHOOD [None]
  - RESPIRATORY SYNCYTIAL VIRUS INFECTION [None]
